FAERS Safety Report 19841136 (Version 1)
Quarter: 2021Q3

REPORT INFORMATION
  Report Type: Other
  Country: US (occurrence: US)
  Receive Date: 20210916
  Receipt Date: 20210916
  Transmission Date: 20211014
  Serious: No
  Sender: FDA-Public Use
  Company Number: US-LEADIANT BIOSCIENCES INC-2021STPI000066

PATIENT
  Age: 41 Year
  Sex: Male

DRUGS (10)
  1. LEVETIRACETAM. [Concomitant]
     Active Substance: LEVETIRACETAM
  2. XARELTO [Concomitant]
     Active Substance: RIVAROXABAN
  3. CIALIS [Concomitant]
     Active Substance: TADALAFIL
  4. TROSPIUM [Concomitant]
     Active Substance: TROSPIUM
  5. FAMOTIDINE. [Concomitant]
     Active Substance: FAMOTIDINE
  6. VIIBRYD [Concomitant]
     Active Substance: VILAZODONE HYDROCHLORIDE
  7. GLEOSTINE [Concomitant]
     Active Substance: LOMUSTINE
  8. MEMANTINE. [Concomitant]
     Active Substance: MEMANTINE
  9. MATULANE [Suspect]
     Active Substance: PROCARBAZINE HYDROCHLORIDE
     Indication: BRAIN NEOPLASM MALIGNANT
     Dosage: 100 MILLIGRAM, DAILY DAYS 8 TO 21 EVERY CYCLE
     Route: 048
     Dates: start: 20200703
  10. ONDANSETRON [Concomitant]
     Active Substance: ONDANSETRON

REACTIONS (3)
  - Pain in extremity [Unknown]
  - Fatigue [Unknown]
  - Stomatitis [Unknown]

NARRATIVE: CASE EVENT DATE: 20210306
